FAERS Safety Report 18717645 (Version 1)
Quarter: 2021Q1

REPORT INFORMATION
  Report Type: Spontaneous
  Country: US (occurrence: US)
  Receive Date: 20210108
  Receipt Date: 20210108
  Transmission Date: 20210419
  Serious: Yes (Other)
  Sender: FDA-Public Use
  Company Number: None

PATIENT
  Age: 67 Year
  Sex: Male
  Weight: 110.25 kg

DRUGS (1)
  1. BUPRENORPHINE 8MG [Suspect]
     Active Substance: BUPRENORPHINE
     Indication: PAIN
     Dosage: ?          QUANTITY:30 TABLET(S);?
     Route: 060

REACTIONS (4)
  - Suspected product tampering [None]
  - Pain [None]
  - Inadequate analgesia [None]
  - Drug level decreased [None]

NARRATIVE: CASE EVENT DATE: 20201227
